FAERS Safety Report 13279858 (Version 1)
Quarter: 2017Q1

REPORT INFORMATION
  Report Type: Spontaneous
  Country: US (occurrence: US)
  Receive Date: 20170228
  Receipt Date: 20170228
  Transmission Date: 20170428
  Serious: Yes (Hospitalization)
  Sender: FDA-Public Use
  Company Number: None

PATIENT
  Age: 64 Year
  Sex: Female
  Weight: 110 kg

DRUGS (1)
  1. OFIRMEV [Suspect]
     Active Substance: ACETAMINOPHEN
     Indication: ANALGESIC THERAPY
     Dosage: ?          OTHER FREQUENCY:ONCE PRN;?
     Route: 040
     Dates: start: 20161012

REACTIONS (5)
  - Anaphylactic reaction [None]
  - Laryngeal oedema [None]
  - Hypotension [None]
  - Wheezing [None]
  - Breast cellulitis [None]

NARRATIVE: CASE EVENT DATE: 20161012
